FAERS Safety Report 14343664 (Version 2)
Quarter: 2018Q1

REPORT INFORMATION
  Report Type: Spontaneous
  Country: JP (occurrence: JP)
  Receive Date: 20180102
  Receipt Date: 20180130
  Transmission Date: 20180509
  Serious: Yes (Hospitalization)
  Sender: FDA-Public Use
  Company Number: JP-EISAI MEDICAL RESEARCH-EC-2018-034744

PATIENT
  Age: 49 Year
  Sex: Female
  Weight: 60 kg

DRUGS (1)
  1. RABECURE [Suspect]
     Active Substance: AMOXICILLIN\CLARITHROMYCIN\RABEPRAZOLE
     Indication: HELICOBACTER GASTRITIS
     Route: 048
     Dates: start: 20160930, end: 20161006

REACTIONS (1)
  - Drug eruption [Recovered/Resolved]

NARRATIVE: CASE EVENT DATE: 20161007
